FAERS Safety Report 5931974-5 (Version None)
Quarter: 2008Q4

REPORT INFORMATION
  Report Type: 
  Country: None (occurrence: None)
  Receive Date: 20081027
  Receipt Date: 20081023
  Transmission Date: 20090506
  Serious: Yes (Death, Hospitalization, Other)
  Sender: FDA-Public Use
  Company Number: PHBS2008CH06117

PATIENT
  Age: 65 Year
  Sex: Female

DRUGS (3)
  1. CYCLOSPORINE [Suspect]
     Indication: LIVER TRANSPLANT
     Dosage: UNK
     Dates: start: 19920101
  2. AZATHIOPRINE [Suspect]
     Indication: LIVER TRANSPLANT
     Dosage: UNK
     Dates: start: 19920101
  3. PREDNISOLONE [Suspect]
     Indication: LIVER TRANSPLANT
     Dosage: UNK
     Dates: start: 19920101, end: 20001001

REACTIONS (12)
  - ASCITES [None]
  - BILIARY CIRRHOSIS PRIMARY [None]
  - CHOLANGITIS [None]
  - DISEASE RECURRENCE [None]
  - HEPATIC ATROPHY [None]
  - HEPATIC CIRRHOSIS [None]
  - HEPATIC FIBROSIS [None]
  - HEPATITIS [None]
  - INFLAMMATION [None]
  - JAUNDICE [None]
  - LIVER TRANSPLANT REJECTION [None]
  - SPLENOMEGALY [None]
